FAERS Safety Report 21530736 (Version 1)
Quarter: 2022Q4

REPORT INFORMATION
  Report Type: Spontaneous
  Country: US (occurrence: None)
  Receive Date: 20221028
  Receipt Date: 20221028
  Transmission Date: 20230113
  Serious: Yes (Hospitalization)
  Sender: FDA-Public Use
  Company Number: None

PATIENT
  Sex: Female

DRUGS (1)
  1. ACTEMRA [Suspect]
     Active Substance: TOCILIZUMAB
     Dosage: OTHER QUANTITY : 162MG/0.9ML;?OTHER FREQUENCY : EVERY 2 WEEKS;?
     Route: 058

REACTIONS (1)
  - Intentional dose omission [None]
